FAERS Safety Report 4696725-3 (Version None)
Quarter: 2005Q2

REPORT INFORMATION
  Report Type: 
  Country: None (occurrence: None)
  Receive Date: 20050620
  Receipt Date: 20050608
  Transmission Date: 20051028
  Serious: Yes (Hospitalization)
  Sender: FDA-Public Use
  Company Number: 2005085540

PATIENT
  Age: 46 Year
  Sex: Female

DRUGS (3)
  1. DIPHENHYDRAMINE HCL [Suspect]
     Indication: INSOMNIA
     Dosage: ONE NIGHTLY; ORAL
     Route: 048
     Dates: start: 20040101
  2. THYROID TAB [Concomitant]
  3. CARDIOVASCULAR SYSTEM DRUGS [Concomitant]

REACTIONS (3)
  - DYSPNOEA [None]
  - SEPSIS [None]
  - URINARY TRACT INFECTION [None]
